FAERS Safety Report 3997759 (Version 6)
Quarter: 2020Q3

REPORT INFORMATION
  Report Type: Report from Study
  Country: US (occurrence: GT)
  Receive Date: 20030826
  Receipt Date: 20121019
  Transmission Date: 20201104
  Serious: Yes (Death)
  Sender: FDA-Public Use
  Company Number: US-JNJFOC-20030803668

PATIENT
  Age: 41 Year
  Sex: Male
  Weight: 69.5 kg

DRUGS (2)
  1. CISAPRIDE [Suspect]
     Active Substance: CISAPRIDE
     Route: 048
  2. CISAPRIDE [Suspect]
     Active Substance: CISAPRIDE
     Indication: IMPAIRED GASTRIC EMPTYING
     Route: 048
     Dates: start: 20010503, end: 20030809

REACTIONS (2)
  - Death [Fatal]
  - Abdominal pain [Unknown]

NARRATIVE: CASE EVENT DATE: 20030810
